FAERS Safety Report 18868548 (Version 4)
Quarter: 2021Q2

REPORT INFORMATION
  Report Type: Spontaneous
  Country: US (occurrence: US)
  Receive Date: 20210209
  Receipt Date: 20210601
  Transmission Date: 20210717
  Serious: Yes (Other)
  Sender: FDA-Public Use
  Company Number: US-JNJFOC-20210207233

PATIENT
  Age: 54 Year
  Sex: Female

DRUGS (2)
  1. TREMFYA [Suspect]
     Active Substance: GUSELKUMAB
     Indication: PSORIASIS
     Route: 058
     Dates: start: 202007
  2. TREMFYA [Suspect]
     Active Substance: GUSELKUMAB
     Route: 065
     Dates: start: 201910

REACTIONS (5)
  - Animal scratch [Unknown]
  - Skin atrophy [Not Recovered/Not Resolved]
  - Impaired healing [Recovering/Resolving]
  - Accident [Unknown]
  - Hernia [Unknown]

NARRATIVE: CASE EVENT DATE: 201910
